FAERS Safety Report 4947781-6 (Version None)
Quarter: 2006Q1

REPORT INFORMATION
  Report Type: 
  Country: None (occurrence: None)
  Receive Date: 20060317
  Receipt Date: 20060317
  Transmission Date: 20060701
  Serious: Yes (Death)
  Sender: FDA-Public Use
  Company Number: None

PATIENT
  Sex: Female
  Weight: 37.72 kg

DRUGS (2)
  1. CISPLATIN [Suspect]
     Indication: SQUAMOUS CELL CARCINOMA OF THE CERVIX
     Dosage: 62 MG
     Dates: start: 20051202, end: 20051202
  2. TAXOL [Suspect]
     Dosage: 170 MG
     Dates: start: 20051201, end: 20051201

REACTIONS (4)
  - CARDIO-RESPIRATORY ARREST [None]
  - PNEUMONIA [None]
  - PUPIL FIXED [None]
  - RENAL FAILURE [None]
